FAERS Safety Report 8813941 (Version 3)
Quarter: 2012Q4

REPORT INFORMATION
  Report Type: 
  Country: US (occurrence: US)
  Receive Date: 20120928
  Receipt Date: 20121205
  Transmission Date: 20130627
  Serious: Yes (Hospitalization)
  Sender: FDA-Public Use
  Company Number: US-009507513-1209USA010416

PATIENT
  Sex: Female
  Weight: 78.5 kg

DRUGS (14)
  1. SINGULAIR [Suspect]
     Indication: CHRONIC OBSTRUCTIVE PULMONARY DISEASE
     Dosage: 10 mg, UNK
  2. VENTOLIN (ALBUTEROL SULFATE) [Suspect]
     Indication: CHRONIC OBSTRUCTIVE PULMONARY DISEASE
  3. ADVAIR [Suspect]
     Indication: CHRONIC OBSTRUCTIVE PULMONARY DISEASE
  4. NEURONTIN [Suspect]
     Indication: NERVE INJURY
     Dosage: 600 mg, tid
     Dates: start: 2008, end: 2012
  5. NEURONTIN [Suspect]
     Dosage: 600 mg, 4 to 5 times a day
  6. GABAPENTIN [Suspect]
     Indication: NERVE INJURY
     Dosage: UNK
     Dates: start: 2012
  7. SPIRIVA [Suspect]
     Indication: CHRONIC OBSTRUCTIVE PULMONARY DISEASE
     Dosage: UNK
  8. PULMICORT [Suspect]
  9. NAPROXEN [Concomitant]
     Indication: OSTEOPOROSIS
     Dosage: 500 mg, qd
  10. LANSOPRAZOLE [Concomitant]
     Indication: GASTROOESOPHAGEAL REFLUX DISEASE
     Dosage: 20 mg, prn
  11. DILAUDID [Concomitant]
  12. DEMEROL [Concomitant]
  13. HYDROCORTISONE [Concomitant]
  14. TRIAMCINOLONE [Concomitant]

REACTIONS (9)
  - Asthma [Unknown]
  - Herpes zoster [Not Recovered/Not Resolved]
  - Nervousness [Unknown]
  - Heart rate increased [Unknown]
  - Pruritus [Unknown]
  - Erythema [Unknown]
  - Drug ineffective [Unknown]
  - Drug administration error [Unknown]
  - Overdose [Unknown]
